FAERS Safety Report 4386454-8 (Version None)
Quarter: 2004Q2

REPORT INFORMATION
  Report Type: 
  Country: None (occurrence: None)
  Receive Date: 20040623
  Receipt Date: 20040610
  Transmission Date: 20050107
  Serious: Yes (Hospitalization)
  Sender: FDA-Public Use
  Company Number: WAES 01113065

PATIENT
  Age: 52 Year
  Sex: Male

DRUGS (5)
  1. CRIXIVAN [Suspect]
     Indication: HIV INFECTION
     Dosage: 800 MG PO
     Route: 048
     Dates: start: 19991102
  2. CAP STOCRIN (EFAVIRENZ) [Suspect]
     Indication: HIV INFECTION
     Dosage: 600 MG PO
     Route: 048
     Dates: start: 19991102
  3. TAB ABACAVIR SULFATE [Suspect]
     Indication: HIV INFECTION
     Dosage: 600 MG PO
     Route: 048
     Dates: start: 19991102
  4. CAP RITONAVIR [Suspect]
     Indication: HIV INFECTION
     Dosage: 800 MG PO
     Route: 048
     Dates: start: 19991102
  5. PENTAMIDINE ISETIONATE [Concomitant]

REACTIONS (6)
  - BLOOD CHOLESTEROL INCREASED [None]
  - BLOOD TRIGLYCERIDES INCREASED [None]
  - GYNAECOMASTIA [None]
  - HYPERLIPIDAEMIA [None]
  - PNEUMOCYSTIS CARINII PNEUMONIA [None]
  - PULMONARY TUBERCULOSIS [None]
